FAERS Safety Report 15165173 (Version 2)
Quarter: 2018Q3

REPORT INFORMATION
  Report Type: Spontaneous
  Country: DE (occurrence: DE)
  Receive Date: 20180719
  Receipt Date: 20180810
  Transmission Date: 20181010
  Serious: Yes (Death)
  Sender: FDA-Public Use
  Company Number: DE-009507513-2002-11-1244

PATIENT
  Age: 63 Year
  Sex: Female

DRUGS (3)
  1. CORTICOSTEROIDS (UNSPECIFIED) [Suspect]
     Active Substance: UNSPECIFIED INGREDIENT
     Indication: ILL-DEFINED DISORDER
     Dosage: DOSE: UNKNOWN, DURATION: UNKNOWN
     Route: 065
  2. TEMODAL [Suspect]
     Active Substance: TEMOZOLOMIDE
     Indication: BRAIN NEOPLASM MALIGNANT
  3. TEMODAL [Suspect]
     Active Substance: TEMOZOLOMIDE
     Indication: ASTROCYTOMA MALIGNANT
     Dosage: DOSE: UNKNOWN, DURATION: 30 CYCLE(S)
     Route: 048
     Dates: start: 1995

REACTIONS (9)
  - Coronary artery occlusion [Fatal]
  - Cardiac failure [Fatal]
  - Hemihypertrophy [Fatal]
  - Peripheral ischaemia [Fatal]
  - Adrenal insufficiency [Fatal]
  - Emphysema [Fatal]
  - Mitral valve incompetence [Fatal]
  - Myocardial fibrosis [Fatal]
  - Hypertension [Fatal]

NARRATIVE: CASE EVENT DATE: 20020729
